FAERS Safety Report 4896232-9 (Version None)
Quarter: 2006Q1

REPORT INFORMATION
  Report Type: 
  Country: None (occurrence: None)
  Receive Date: 20060126
  Receipt Date: 20060113
  Transmission Date: 20060701
  Serious: Yes (Hospitalization, Other)
  Sender: FDA-Public Use
  Company Number: HQWYE374316JAN06

PATIENT
  Age: 87 Year
  Sex: Male
  Weight: 48.58 kg

DRUGS (3)
  1. MYLOTARG [Suspect]
     Indication: ACUTE MYELOID LEUKAEMIA
     Dosage: A SINGLE 13.3 MG DOSE, INTRAVENOUS
     Route: 042
     Dates: start: 20051205, end: 20051205
  2. CARDIZEM [Concomitant]
  3. LEVOFLOXACIN [Concomitant]

REACTIONS (10)
  - ATRIAL FIBRILLATION [None]
  - CACHEXIA [None]
  - CELLULITIS [None]
  - FATIGUE [None]
  - HAEMOGLOBIN DECREASED [None]
  - NEUTROPENIA [None]
  - PLATELET COUNT DECREASED [None]
  - SKIN LACERATION [None]
  - URINE ANALYSIS ABNORMAL [None]
  - WHITE BLOOD CELL COUNT DECREASED [None]
